FAERS Safety Report 7077177-5 (Version None)
Quarter: 2010Q4

REPORT INFORMATION
  Report Type: 
  Country: None (occurrence: None)
  Receive Date: 20101101
  Receipt Date: 20101026
  Transmission Date: 20110411
  Serious: Yes (Other)
  Sender: FDA-Public Use
  Company Number: B0679984A

PATIENT
  Sex: Female
  Weight: 72.5 kg

DRUGS (8)
  1. LAMICTAL [Suspect]
     Indication: EPILEPSY
     Route: 048
     Dates: start: 20100923, end: 20101017
  2. DIGOXINE [Concomitant]
     Dosage: .25MG PER DAY
     Route: 048
  3. TAHOR [Concomitant]
     Dosage: 10MG PER DAY
     Route: 048
  4. KARDEGIC [Concomitant]
     Dosage: 75MG PER DAY
     Route: 048
  5. METFORMIN [Concomitant]
     Dosage: 500MG THREE TIMES PER DAY
     Route: 048
  6. URBANYL [Concomitant]
     Dosage: 15MG PER DAY
     Route: 048
     Dates: start: 20101013
  7. PREVISCAN [Concomitant]
     Dosage: .75TAB PER DAY
  8. EFFEXOR [Concomitant]
     Dates: start: 20101013

REACTIONS (3)
  - INCORRECT DOSE ADMINISTERED [None]
  - LEUKOPENIA [None]
  - RASH MACULAR [None]
